FAERS Safety Report 24587268 (Version 2)
Quarter: 2024Q4

REPORT INFORMATION
  Report Type: Spontaneous
  Country: US (occurrence: US)
  Receive Date: 20241107
  Receipt Date: 20241122
  Transmission Date: 20250114
  Serious: Yes (Other)
  Sender: ACCORD
  Company Number: US-MLMSERVICE-20241021-PI231938-00082-1

PATIENT
  Age: 74 Year
  Sex: Female

DRUGS (8)
  1. CARBOPLATIN [Suspect]
     Active Substance: CARBOPLATIN
     Indication: Malignant peritoneal neoplasm
     Dosage: DOSE WAS DECREASED IN THE SECOND CYCLE AND RECEIVED THREE CYCLES AFTER DECREASE IN DOSE
  2. PACLITAXEL [Suspect]
     Active Substance: PACLITAXEL
     Indication: Malignant peritoneal neoplasm
     Dosage: DOSE WAS DECREASED IN THE SECOND CYCLE AND RECEIVED THREE CYCLES AFTER DECREASE IN DOSE
  3. PACLITAXEL [Suspect]
     Active Substance: PACLITAXEL
     Indication: Ovarian cancer stage IV
     Dosage: DOSE WAS DECREASED IN THE SECOND CYCLE AND RECEIVED THREE CYCLES AFTER DECREASE IN DOSE
  4. CARBOPLATIN [Suspect]
     Active Substance: CARBOPLATIN
     Indication: Metastases to pleura
     Dosage: DOSE WAS DECREASED IN THE SECOND CYCLE AND RECEIVED THREE CYCLES AFTER DECREASE IN DOSE
  5. CARBOPLATIN [Suspect]
     Active Substance: CARBOPLATIN
     Indication: Metastases to lymph nodes
     Dosage: DOSE WAS DECREASED IN THE SECOND CYCLE AND RECEIVED THREE CYCLES AFTER DECREASE IN DOSE
  6. PACLITAXEL [Suspect]
     Active Substance: PACLITAXEL
     Indication: Metastases to lymph nodes
     Dosage: DOSE WAS DECREASED IN THE SECOND CYCLE AND RECEIVED THREE CYCLES AFTER DECREASE IN DOSE
  7. PACLITAXEL [Suspect]
     Active Substance: PACLITAXEL
     Indication: Metastases to pleura
     Dosage: DOSE WAS DECREASED IN THE SECOND CYCLE AND RECEIVED THREE CYCLES AFTER DECREASE IN DOSE
  8. CARBOPLATIN [Suspect]
     Active Substance: CARBOPLATIN
     Indication: Ovarian cancer stage IV
     Dosage: DOSE WAS DECREASED IN THE SECOND CYCLE AND RECEIVED THREE CYCLES AFTER DECREASE IN DOSE

REACTIONS (3)
  - Bowen^s disease [Recovered/Resolved]
  - Neutropenia [Recovered/Resolved]
  - Off label use [Unknown]
